FAERS Safety Report 17304122 (Version 2)
Quarter: 2021Q4

REPORT INFORMATION
  Report Type: Report from Study
  Country: DE (occurrence: DE)
  Receive Date: 20200122
  Receipt Date: 20211104
  Transmission Date: 20220303
  Serious: Yes (Death, Hospitalization)
  Sender: FDA-Public Use
  Company Number: DE-EXELIXIS-XL18420026774

PATIENT
  Age: 63 Year
  Sex: Male
  Weight: 107.8 kg

DRUGS (16)
  1. CABOZANTINIB [Suspect]
     Active Substance: CABOZANTINIB
     Indication: Adrenocortical carcinoma
     Dosage: 60 MG, QD
     Route: 048
     Dates: start: 20191217, end: 20200107
  2. CABOZANTINIB [Suspect]
     Active Substance: CABOZANTINIB
     Indication: Metastases to lymph nodes
  3. CABOZANTINIB [Suspect]
     Active Substance: CABOZANTINIB
     Indication: Metastases to lung
  4. CABOZANTINIB [Suspect]
     Active Substance: CABOZANTINIB
     Indication: Metastases to liver
  5. LEVOTHYROXINE SODIUM [Concomitant]
     Active Substance: LEVOTHYROXINE SODIUM
     Indication: Hypothyroidism
     Dosage: 175 UG
     Dates: start: 2009
  6. ESOMEPRAZOLE [Concomitant]
     Active Substance: ESOMEPRAZOLE
     Indication: Prophylaxis
     Dosage: 40 MG
     Dates: start: 2009
  7. CORTISONACETAT [Concomitant]
     Indication: Adrenal insufficiency
     Dosage: 75 MG
     Dates: start: 2008
  8. METFORMIN [Concomitant]
     Active Substance: METFORMIN HYDROCHLORIDE
     Indication: Diabetes mellitus
     Dosage: 1500 MG
     Dates: start: 2010
  9. OMEGA-3-ACID ETHYL ESTERS [Concomitant]
     Active Substance: OMEGA-3-ACID ETHYL ESTERS
     Indication: Hyperlipidaemia
     Dosage: 3000 MG
  10. ROSUVASTATIN [Concomitant]
     Active Substance: ROSUVASTATIN
     Indication: Hyperlipidaemia
     Dosage: 10 MG
     Dates: start: 2013
  11. CREON [Concomitant]
     Active Substance: PANCRELIPASE AMYLASE\PANCRELIPASE LIPASE\PANCRELIPASE PROTEASE
     Indication: Pancreatic failure
     Dosage: 300 MG
     Dates: start: 2015
  12. FLUDROCORTISONE [Concomitant]
     Active Substance: FLUDROCORTISONE
     Indication: Adrenal insufficiency
     Dosage: 0.1 MG
     Dates: start: 2012
  13. ENOXAPARIN [Concomitant]
     Active Substance: ENOXAPARIN
     Indication: Pulmonary embolism
     Dosage: 1 ML
     Dates: start: 20191214, end: 20191216
  14. ENOXAPARIN [Concomitant]
     Active Substance: ENOXAPARIN
     Indication: Prophylaxis
     Dosage: 0.4 ML
     Dates: start: 20191217
  15. MAGNESIUM [Concomitant]
     Active Substance: MAGNESIUM
     Indication: Muscle spasms
  16. DABIGATRAN [Concomitant]
     Active Substance: DABIGATRAN
     Indication: Pulmonary embolism
     Dosage: 300 MG
     Dates: end: 20191213

REACTIONS (5)
  - Cerebrovascular accident [Fatal]
  - Atrial fibrillation [Fatal]
  - Cardiac failure [Fatal]
  - Cardiac arrest [Fatal]
  - Bronchitis [Recovered/Resolved]

NARRATIVE: CASE EVENT DATE: 20191205
